FAERS Safety Report 6852016-3 (Version None)
Quarter: 2010Q3

REPORT INFORMATION
  Report Type: 
  Country: None (occurrence: None)
  Receive Date: 20100717
  Receipt Date: 20071105
  Transmission Date: 20110219
  Serious: No
  Sender: FDA-Public Use
  Company Number: US-PFIZER INC-2007094785

PATIENT
  Sex: Female
  Weight: 77.1 kg

DRUGS (9)
  1. CHANTIX [Suspect]
     Indication: SMOKING CESSATION THERAPY
     Dates: start: 20071009
  2. LIPITOR [Concomitant]
  3. PROTONIX [Concomitant]
  4. VALTREX [Concomitant]
  5. THORAZINE [Concomitant]
  6. TOPAMAX [Concomitant]
  7. FORADIL [Concomitant]
     Dosage: 2 PUFFS
  8. MOMETASONE FUROATE [Concomitant]
     Dosage: 2 PUFFS
  9. COMBIVENT [Concomitant]

REACTIONS (4)
  - ABDOMINAL PAIN [None]
  - DEPRESSION [None]
  - FATIGUE [None]
  - HYPERSOMNIA [None]
